FAERS Safety Report 6397468-0 (Version None)
Quarter: 2009Q4

REPORT INFORMATION
  Report Type: 
  Country: None (occurrence: None)
  Receive Date: 20091012
  Receipt Date: 20091008
  Transmission Date: 20100525
  Serious: Yes (Life-Threatening, Other)
  Sender: FDA-Public Use
  Company Number: PHEH2009US13400

PATIENT
  Sex: Male

DRUGS (6)
  1. DIOVAN HCT [Suspect]
     Indication: HYPERTENSION
     Dosage: 320/12.5 MG, DAILY
     Route: 048
     Dates: start: 20060101, end: 20090101
  2. CALCIUM [Concomitant]
     Dosage: 1200 MG, QD
  3. IBUPROFEN [Concomitant]
     Dosage: 200 MG, UNK
  4. ASPIRIN [Concomitant]
     Dosage: 81 MG, QD
  5. PLAVIX [Concomitant]
     Dosage: 75 MG, UNK
  6. LOPERAMIDE [Concomitant]
     Indication: DIARRHOEA
     Dosage: 2 MG, PRN

REACTIONS (13)
  - ASTHENIA [None]
  - BACK PAIN [None]
  - BLOOD PRESSURE INCREASED [None]
  - BONE PAIN [None]
  - CONTUSION [None]
  - CORONARY ARTERIAL STENT INSERTION [None]
  - CORONARY ARTERY OCCLUSION [None]
  - DYSSTASIA [None]
  - FEELING ABNORMAL [None]
  - HYPERHIDROSIS [None]
  - MUSCLE SPASMS [None]
  - MUSCLE STRAIN [None]
  - PAIN IN EXTREMITY [None]
